FAERS Safety Report 24027028 (Version 4)
Quarter: 2024Q3

REPORT INFORMATION
  Report Type: Report from Study
  Country: CN (occurrence: CN)
  Receive Date: 20240628
  Receipt Date: 20240710
  Transmission Date: 20241016
  Serious: No
  Sender: ROCHE
  Company Number: CN-ROCHE-3490587

PATIENT
  Age: 78 Year
  Sex: Female
  Weight: 66.0 kg

DRUGS (11)
  1. ALECTINIB [Suspect]
     Active Substance: ALECTINIB
     Indication: Non-small cell lung cancer metastatic
     Route: 048
     Dates: start: 20211201
  2. TRIMETAZIDINE DIHYDROCHLORIDE [Concomitant]
     Active Substance: TRIMETAZIDINE DIHYDROCHLORIDE
     Indication: Atrial fibrillation
     Route: 048
     Dates: start: 20200408
  3. HERBALS\DIAMMONIUM GLYCYRRHIZINATE [Concomitant]
     Active Substance: HERBALS\DIAMMONIUM GLYCYRRHIZINATE
     Indication: Liver injury
     Dosage: ENTERIC COATED CAPSULES
     Route: 048
     Dates: start: 20211010
  4. SILIBININ [Concomitant]
     Active Substance: SILIBININ
     Indication: Liver injury
     Route: 048
     Dates: start: 20211202
  5. ASPIRIN [Concomitant]
     Active Substance: ASPIRIN
     Indication: Atrial fibrillation
     Route: 048
     Dates: start: 20200112, end: 20231121
  6. LEUCOGEN [Concomitant]
     Active Substance: LEUCOGEN
     Indication: White blood cell count decreased
     Route: 048
     Dates: start: 20230106
  7. LEUCOGEN [Concomitant]
     Active Substance: LEUCOGEN
     Indication: Platelet count decreased
  8. RIVAROXABAN [Concomitant]
     Active Substance: RIVAROXABAN
     Indication: Atrial fibrillation
     Route: 048
     Dates: start: 20230611, end: 202309
  9. FERROUS SUCCINATE [Concomitant]
     Active Substance: FERROUS SUCCINATE
     Indication: Anaemia
     Route: 048
     Dates: start: 20230807, end: 202308
  10. PAMIDRONATE DISODIUM AND GLUCOSE [Concomitant]
     Indication: Metastases to bone
     Route: 042
     Dates: start: 20230807, end: 20230808
  11. ALECTINIB [Concomitant]
     Active Substance: ALECTINIB
     Indication: Lung neoplasm malignant
     Dates: start: 20200106

REACTIONS (1)
  - Cardiac failure chronic [Not Recovered/Not Resolved]

NARRATIVE: CASE EVENT DATE: 20230807
